FAERS Safety Report 25410148 (Version 1)
Quarter: 2025Q2

REPORT INFORMATION
  Report Type: Other
  Country: PL (occurrence: PL)
  Receive Date: 20250607
  Receipt Date: 20250607
  Transmission Date: 20250717
  Serious: Yes (Hospitalization, Disabling, Other)
  Sender: B BRAUN
  Company Number: PL-B.Braun Medical Inc.-2178227

PATIENT
  Age: 33 Year
  Sex: Female

DRUGS (4)
  1. ACETAMINOPHEN [Suspect]
     Active Substance: ACETAMINOPHEN
     Indication: Pyrexia
  2. CARBAMAZEPINE [Interacting]
     Active Substance: CARBAMAZEPINE
  3. DEXAMETHASONE [Interacting]
     Active Substance: DEXAMETHASONE
  4. CARBAMAZEPINE [Interacting]
     Active Substance: CARBAMAZEPINE

REACTIONS (3)
  - Drug reaction with eosinophilia and systemic symptoms [Recovered/Resolved]
  - Drug interaction [Recovering/Resolving]
  - Hepatotoxicity [Recovering/Resolving]
